FAERS Safety Report 25305092 (Version 1)
Quarter: 2025Q2

REPORT INFORMATION
  Report Type: Spontaneous
  Country: AU (occurrence: AU)
  Receive Date: 20250513
  Receipt Date: 20250513
  Transmission Date: 20250716
  Serious: Yes (Other)
  Sender: MERCK SHARP & DOHME LLC
  Company Number: AU-009507513-2283652

PATIENT
  Age: 46 Year
  Sex: Female

DRUGS (2)
  1. M-M-R II [Suspect]
     Active Substance: MEASLES VIRUS STRAIN ENDERS^ ATTENUATED EDMONSTON LIVE ANTIGEN\MUMPS VIRUS STRAIN B LEVEL JERYL LYNN
     Route: 065
     Dates: start: 20250110, end: 20250110
  2. STERILE DILUENT (WATER) [Suspect]
     Active Substance: WATER
     Route: 065

REACTIONS (2)
  - Anaphylactic reaction [Unknown]
  - Anxiety [Unknown]

NARRATIVE: CASE EVENT DATE: 20250110
